FAERS Safety Report 8801048 (Version 4)
Quarter: 2012Q4

REPORT INFORMATION
  Report Type: 
  Country: JP (occurrence: JP)
  Receive Date: 20120920
  Receipt Date: 20121108
  Transmission Date: 20130627
  Serious: Yes (Disabling)
  Sender: FDA-Public Use
  Company Number: JP-ROCHE-1131437

PATIENT
  Age: 52 Year
  Sex: Male
  Weight: 63 kg

DRUGS (8)
  1. AVASTIN [Suspect]
     Indication: LUNG ADENOCARCINOMA METASTATIC
     Dosage: 7.5mg/kg
     Route: 041
     Dates: start: 20120111, end: 20120406
  2. CISPLATIN [Suspect]
     Indication: LUNG ADENOCARCINOMA METASTATIC
     Route: 041
     Dates: start: 20120111, end: 20120306
  3. ALIMTA [Concomitant]
     Indication: LUNG ADENOCARCINOMA METASTATIC
     Route: 041
     Dates: start: 20120111, end: 20120406
  4. GRANISETRON [Concomitant]
     Indication: PROPHYLAXIS OF NAUSEA AND VOMITING
     Route: 041
     Dates: start: 20120406, end: 20120406
  5. SELECTOL [Concomitant]
     Indication: HYPERTENSION
     Dosage: Before 2010/12-
     Route: 048
  6. MICARDIS [Concomitant]
     Indication: HYPERTENSION
     Dosage: Before 2010/12-
     Route: 048
  7. PANVITAN [Concomitant]
     Indication: PROPHYLAXIS
     Route: 048
     Dates: start: 20120106, end: 20120430
  8. GASTER [Concomitant]
     Indication: ABDOMINAL DISCOMFORT
     Dosage: Before 2012/3/23-
     Route: 048
     Dates: end: 20120430

REACTIONS (2)
  - Normal pressure hydrocephalus [Recovering/Resolving]
  - Decreased appetite [Unknown]
